FAERS Safety Report 25726973 (Version 1)
Quarter: 2025Q3

REPORT INFORMATION
  Report Type: Spontaneous
  Country: US (occurrence: None)
  Receive Date: 20250825
  Receipt Date: 20250825
  Transmission Date: 20251020
  Serious: Yes (Hospitalization)
  Sender: FDA-CTU
  Company Number: None

PATIENT

DRUGS (1)
  1. VANCOMYCIN [Suspect]
     Active Substance: VANCOMYCIN
     Route: 042

REACTIONS (5)
  - Drug level above therapeutic [None]
  - Blood creatinine increased [None]
  - Acute kidney injury [None]
  - Product prescribing issue [None]
  - Incorrect dose administered [None]

NARRATIVE: CASE EVENT DATE: 20220525
